FAERS Safety Report 6554439-9 (Version None)
Quarter: 2010Q1

REPORT INFORMATION
  Report Type: 
  Country: None (occurrence: None)
  Receive Date: 20100125
  Receipt Date: 20100125
  Transmission Date: 20100710
  Serious: Yes (Hospitalization)
  Sender: FDA-Public Use
  Company Number: None

PATIENT
  Age: 68 Year
  Sex: Female
  Weight: 26.3086 kg

DRUGS (10)
  1. PIROXICAM [Suspect]
     Indication: ARTHRALGIA
     Dosage: 10 MG DAILY PO PRIOR TO ADMISSION
     Route: 048
  2. RANITIDINE [Concomitant]
  3. IRON [Concomitant]
  4. VITAMIN D3 [Concomitant]
  5. FUROSEMIDE [Concomitant]
  6. TEMAZEPAM [Concomitant]
  7. ATENOLOL [Concomitant]
  8. CONJUGATED [Concomitant]
  9. LORATADINE [Concomitant]
  10. OMEPRAZOLE [Concomitant]

REACTIONS (2)
  - GASTRIC ULCER [None]
  - GASTROINTESTINAL HAEMORRHAGE [None]
